FAERS Safety Report 24139009 (Version 3)
Quarter: 2024Q3

REPORT INFORMATION
  Report Type: Spontaneous
  Country: US (occurrence: US)
  Receive Date: 20240726
  Receipt Date: 20240906
  Transmission Date: 20241016
  Serious: No
  Sender: BRISTOL MYERS SQUIBB
  Company Number: US-EXELIXIS-CABO-24079626

PATIENT
  Age: 6 Decade
  Sex: Male

DRUGS (14)
  1. OPDIVO [Suspect]
     Active Substance: NIVOLUMAB
     Indication: Adrenal gland cancer
     Dates: start: 20240625
  2. YERVOY [Suspect]
     Active Substance: IPILIMUMAB
     Indication: Adrenal gland cancer
     Dates: start: 20240625
  3. MITOTANE [Suspect]
     Active Substance: MITOTANE
     Indication: Adrenal gland cancer
     Dosage: 1000 MG, Q4HR
  4. MITOTANE [Suspect]
     Active Substance: MITOTANE
     Dosage: 5000 MG, QD
  5. CABOMETYX [Suspect]
     Active Substance: CABOZANTINIB S-MALATE
     Indication: Adrenal gland cancer
     Dates: start: 20240625, end: 20240702
  6. CABOMETYX [Suspect]
     Active Substance: CABOZANTINIB S-MALATE
     Dates: start: 20240731
  7. AMLODIPINE [Concomitant]
     Active Substance: AMLODIPINE BESYLATE
     Indication: Product used for unknown indication
  8. JARDIANCE [Concomitant]
     Active Substance: EMPAGLIFLOZIN
     Indication: Product used for unknown indication
  9. HYDROCHLOROTHIAZIDE [Concomitant]
     Active Substance: HYDROCHLOROTHIAZIDE
     Indication: Product used for unknown indication
  10. LOSARTAN [Concomitant]
     Active Substance: LOSARTAN\LOSARTAN POTASSIUM
     Indication: Product used for unknown indication
  11. METOPROLOL TARTRATE [Concomitant]
     Active Substance: METOPROLOL TARTRATE
     Indication: Product used for unknown indication
  12. SAVAYSA [Concomitant]
     Active Substance: EDOXABAN TOSYLATE
     Indication: Product used for unknown indication
  13. IMODIUM [Concomitant]
     Active Substance: LOPERAMIDE HYDROCHLORIDE
     Indication: Product used for unknown indication
  14. ZOFRAN [Concomitant]
     Active Substance: ONDANSETRON HYDROCHLORIDE
     Indication: Product used for unknown indication

REACTIONS (8)
  - Hepatic enzyme increased [Not Recovered/Not Resolved]
  - Taste disorder [Not Recovered/Not Resolved]
  - Constipation [Recovered/Resolved]
  - Rash [Not Recovered/Not Resolved]
  - Off label use [Unknown]
  - Rash macular [Not Recovered/Not Resolved]
  - Tongue ulceration [Not Recovered/Not Resolved]
  - Stomatitis [Not Recovered/Not Resolved]
